FAERS Safety Report 5684585-3 (Version None)
Quarter: 2008Q1

REPORT INFORMATION
  Report Type: 
  Country: None (occurrence: None)
  Receive Date: 20080328
  Receipt Date: 20070314
  Transmission Date: 20080703
  Serious: No
  Sender: FDA-Public Use
  Company Number: US-BRISTOL-MYERS SQUIBB COMPANY-13714209

PATIENT
  Sex: Male
  Weight: 79 kg

DRUGS (4)
  1. ERBITUX [Suspect]
     Indication: RECTAL CANCER
     Dates: start: 20061115
  2. VERAPAMIL [Concomitant]
  3. VICODIN [Concomitant]
  4. LORAZEPAM [Concomitant]

REACTIONS (6)
  - HAEMORRHAGE [None]
  - MOUTH ULCERATION [None]
  - NASAL ULCER [None]
  - PAIN [None]
  - RASH GENERALISED [None]
  - RHINORRHOEA [None]
